FAERS Safety Report 10780833 (Version 1)
Quarter: 2015Q1

REPORT INFORMATION
  Report Type: Spontaneous
  Country: US (occurrence: US)
  Receive Date: 20150210
  Receipt Date: 20150210
  Transmission Date: 20150721
  Serious: No
  Sender: FDA-Public Use
  Company Number: US-GLAXOSMITHKLINE-A1056283A

PATIENT

DRUGS (2)
  1. NICODERM CQ [Suspect]
     Active Substance: NICOTINE
     Indication: SMOKING CESSATION THERAPY
     Route: 062
     Dates: start: 20131231, end: 20140109
  2. NICORETTE [Suspect]
     Active Substance: NICOTINE
     Indication: SMOKING CESSATION THERAPY
     Route: 002

REACTIONS (14)
  - Tobacco poisoning [Recovered/Resolved]
  - Application site swelling [Not Recovered/Not Resolved]
  - Headache [None]
  - Pruritus [Unknown]
  - Nausea [Recovered/Resolved]
  - Abdominal discomfort [Recovered/Resolved]
  - Application site induration [Not Recovered/Not Resolved]
  - Tremor [Not Recovered/Not Resolved]
  - Application site erythema [Not Recovered/Not Resolved]
  - Dermatitis contact [Unknown]
  - Rash [Unknown]
  - Application site pain [Not Recovered/Not Resolved]
  - Application site vesicles [Not Recovered/Not Resolved]
  - Application site reaction [Not Recovered/Not Resolved]
